FAERS Safety Report 10645130 (Version 1)
Quarter: 2014Q4

REPORT INFORMATION
  Report Type: Spontaneous
  Country: US (occurrence: US)
  Receive Date: 20141211
  Receipt Date: 20141211
  Transmission Date: 20150529
  Serious: Yes (Hospitalization)
  Sender: FDA-Public Use
  Company Number: US-BIOGENIDEC-2014BI129637

PATIENT
  Age: 54 Year
  Sex: Female
  Weight: 31 kg

DRUGS (1)
  1. AVONEX [Suspect]
     Active Substance: INTERFERON BETA-1A
     Indication: MULTIPLE SCLEROSIS
     Route: 030
     Dates: start: 1998

REACTIONS (10)
  - Anaesthetic complication neurological [Recovered/Resolved]
  - Gastrostomy failure [Recovered/Resolved]
  - Abnormal loss of weight [Not Recovered/Not Resolved]
  - Influenza like illness [Recovered/Resolved]
  - Adverse event [Unknown]
  - Scar [Not Recovered/Not Resolved]
  - Underweight [Unknown]
  - Choking [Recovered/Resolved]
  - Foot operation [Recovered/Resolved]
  - Injection site reaction [Unknown]

NARRATIVE: CASE EVENT DATE: 1998
